FAERS Safety Report 20629626 (Version 1)
Quarter: 2022Q1

REPORT INFORMATION
  Report Type: Spontaneous
  Country: BR (occurrence: BR)
  Receive Date: 20220323
  Receipt Date: 20220323
  Transmission Date: 20220423
  Serious: Yes (Disabling, Other)
  Sender: FDA-Public Use
  Company Number: BR-BIOMARINAP-BR-2022-142004

PATIENT
  Age: 19 Year
  Sex: Male
  Weight: 27 kg

DRUGS (2)
  1. NAGLAZYME [Suspect]
     Active Substance: GALSULFASE
     Indication: Mucopolysaccharidosis VI
     Dosage: UNK, QW
     Route: 042
     Dates: start: 20121203
  2. NAGLAZYME [Suspect]
     Active Substance: GALSULFASE
     Dosage: UNK, QW
     Route: 042

REACTIONS (5)
  - Spinal cord compression [Not Recovered/Not Resolved]
  - Dizziness [Not Recovered/Not Resolved]
  - Inflammation [Not Recovered/Not Resolved]
  - Stress [Not Recovered/Not Resolved]
  - Insomnia [Recovering/Resolving]

NARRATIVE: CASE EVENT DATE: 20210801
